FAERS Safety Report 16636195 (Version 3)
Quarter: 2019Q3

REPORT INFORMATION
  Report Type: Spontaneous
  Country: US (occurrence: US)
  Receive Date: 20190726
  Receipt Date: 20190909
  Transmission Date: 20191004
  Serious: Yes (Hospitalization)
  Sender: FDA-Public Use
  Company Number: US-PFIZER INC-2019315260

PATIENT
  Age: 77 Year
  Sex: Female
  Weight: 73.47 kg

DRUGS (1)
  1. XELJANZ XR [Suspect]
     Active Substance: TOFACITINIB CITRATE
     Indication: RHEUMATOID ARTHRITIS
     Dosage: 11 MG, 1X/DAY
     Dates: start: 20190628, end: 20190712

REACTIONS (7)
  - Malaise [Recovered/Resolved]
  - Gait disturbance [Unknown]
  - Nervous system disorder [Unknown]
  - Condition aggravated [Unknown]
  - Nervousness [Unknown]
  - Autoscopy [Recovered/Resolved]
  - Dysgraphia [Unknown]

NARRATIVE: CASE EVENT DATE: 201907
